FAERS Safety Report 14847366 (Version 4)
Quarter: 2018Q2

REPORT INFORMATION
  Report Type: Spontaneous
  Country: DE (occurrence: DE)
  Receive Date: 20180504
  Receipt Date: 20180627
  Transmission Date: 20180711
  Serious: Yes (Hospitalization)
  Sender: FDA-Public Use
  Company Number: DE-AUROBINDO-AUR-APL-2018-023479

PATIENT
  Age: 62 Year
  Sex: Female
  Weight: 45 kg

DRUGS (148)
  1. LEVOPAR [Interacting]
     Active Substance: BENSERAZIDE\LEVODOPA
     Dosage: 100 MG, QD
     Route: 048
  2. VIGANTOLETTEN [Interacting]
     Active Substance: CHOLECALCIFEROL
     Route: 048
  3. VIGANTOLETTEN [Interacting]
     Active Substance: CHOLECALCIFEROL
     Dosage: 100 OT, QD (100 IE, 1-0-0-0) (1)
     Route: 048
  4. LACTULOSE. [Interacting]
     Active Substance: LACTULOSE
     Dosage: 1 MEASURING CUP, (1)
     Route: 048
  5. LACTULOSE. [Interacting]
     Active Substance: LACTULOSE
     Dosage: 1 MEASURING CUP, 0-0-1-0 ()
     Route: 048
  6. EZETROL [Interacting]
     Active Substance: EZETIMIBE
     Dosage: 10 MG, QD
     Route: 048
  7. SPIRONOLACTON [Interacting]
     Active Substance: SPIRONOLACTONE
     Dosage: 100 MG,
     Route: 048
  8. SPIRONOLACTON [Interacting]
     Active Substance: SPIRONOLACTONE
     Route: 048
  9. SPIRONOLACTON [Interacting]
     Active Substance: SPIRONOLACTONE
     Route: 048
  10. URSOFALK [Interacting]
     Active Substance: URSODIOL
     Route: 048
  11. URSOFALK [Interacting]
     Active Substance: URSODIOL
     Dosage: 500 MG,
     Route: 048
  12. URSOFALK [Interacting]
     Active Substance: URSODIOL
     Dosage: 500 MG, 1-0-1-0
     Route: 048
  13. URSOFALK [Interacting]
     Active Substance: URSODIOL
     Route: 048
  14. VIANI [Interacting]
     Active Substance: FLUTICASONE PROPIONATE\SALMETEROL XINAFOATE
     Dosage: RESPIRATORY (INHALATION)50|500 ?G, 1-0-1-0 ()
     Route: 055
  15. ESIDRIX [Interacting]
     Active Substance: HYDROCHLOROTHIAZIDE
     Dosage: 25 MG,QD
     Route: 048
  16. MUCOSOLVAN [Interacting]
     Active Substance: AMBROXOL HYDROCHLORIDE
     Dosage: REQUIREMENT, BEDARFAS NECESSARY ()
     Route: 048
  17. MUCOSOLVAN [Interacting]
     Active Substance: AMBROXOL HYDROCHLORIDE
     Dosage: REQUIREMENT () ; AS NECESSARY
     Route: 048
  18. MUCOSOLVAN [Interacting]
     Active Substance: AMBROXOL HYDROCHLORIDE
     Dosage: REQUIREMENT, BEDARFAS NECESSARY ()
     Route: 048
  19. MAGNESIUM [Suspect]
     Active Substance: MAGNESIUM
     Dosage: (2)
     Route: 048
  20. LEVOPAR [Interacting]
     Active Substance: BENSERAZIDE\LEVODOPA
     Dosage: 100 MG
     Route: 048
  21. RAPAMUNE [Interacting]
     Active Substance: SIROLIMUS
     Indication: PRODUCT USED FOR UNKNOWN INDICATION
     Dosage: 1 MILLIGRAM, ONCE A DAY
     Route: 048
  22. RAPAMUNE [Interacting]
     Active Substance: SIROLIMUS
     Dosage: 1 MG, QD (1-0-0-0)
     Route: 048
  23. VIGANTOLETTEN [Interacting]
     Active Substance: CHOLECALCIFEROL
     Dosage: 100 IE, 1-0-0-0
     Route: 048
  24. VIGANTOLETTEN [Interacting]
     Active Substance: CHOLECALCIFEROL
     Route: 048
  25. EZETROL [Interacting]
     Active Substance: EZETIMIBE
     Dosage: 10 MG,
     Route: 048
  26. SPIRONOLACTON [Interacting]
     Active Substance: SPIRONOLACTONE
     Dosage: 100 MG,BID
     Route: 048
  27. URSOFALK [Interacting]
     Active Substance: URSODIOL
     Dosage: 500 MG, 1-0-1-0
     Route: 048
  28. URSOFALK [Interacting]
     Active Substance: URSODIOL
     Dosage: 500 MG, BID (1-0-1-0)
     Route: 048
  29. URSOFALK [Interacting]
     Active Substance: URSODIOL
     Dosage: 500 MG, BID (1-0-1-0)
     Route: 048
  30. SPIRIVA [Interacting]
     Active Substance: TIOTROPIUM BROMIDE MONOHYDRATE
     Dosage: 18 UG, BID (1-0-1-0)
     Route: 055
  31. VIANI [Interacting]
     Active Substance: FLUTICASONE PROPIONATE\SALMETEROL XINAFOATE
     Dosage: 50|500 ?G,
     Route: 055
  32. ESIDRIX [Interacting]
     Active Substance: HYDROCHLOROTHIAZIDE
     Dosage: 25 MG, 1-0-0-0
     Route: 048
  33. ESIDRIX [Interacting]
     Active Substance: HYDROCHLOROTHIAZIDE
     Dosage: 25 MG, 1-0-0-0
     Route: 048
  34. ESIDRIX [Interacting]
     Active Substance: HYDROCHLOROTHIAZIDE
     Dosage: 25 MG, QD (1-0-0-0)
     Route: 048
  35. ESIDRIX [Interacting]
     Active Substance: HYDROCHLOROTHIAZIDE
     Dosage: 25 MG, QD (1-0-0-0)
     Route: 048
  36. MUCOSOLVAN [Interacting]
     Active Substance: AMBROXOL HYDROCHLORIDE
     Indication: PRODUCT USED FOR UNKNOWN INDICATION
     Dosage: BEDARF ()
     Route: 048
  37. MUCOSOLVAN [Interacting]
     Active Substance: AMBROXOL HYDROCHLORIDE
     Dosage: (BEDARF) ()
     Route: 048
  38. LEVOPAR [Interacting]
     Active Substance: BENSERAZIDE\LEVODOPA
     Dosage: 100 MG 1-0-2.5-0
     Route: 048
  39. LEVOPAR [Interacting]
     Active Substance: BENSERAZIDE\LEVODOPA
     Route: 048
  40. LEVOPAR [Interacting]
     Active Substance: BENSERAZIDE\LEVODOPA
     Route: 048
  41. RAPAMUNE [Interacting]
     Active Substance: SIROLIMUS
     Dosage: 1 MG
     Route: 048
  42. RAPAMUNE [Interacting]
     Active Substance: SIROLIMUS
     Route: 048
  43. RAPAMUNE [Interacting]
     Active Substance: SIROLIMUS
     Dosage: 1 MG,QD
     Route: 048
  44. RAPAMUNE [Interacting]
     Active Substance: SIROLIMUS
     Dosage: 1 MG
     Route: 048
  45. LACTULOSE. [Interacting]
     Active Substance: LACTULOSE
     Dosage: 1 MEASURING CUP, 0-0-1-0 ()
     Route: 048
  46. EZETROL [Interacting]
     Active Substance: EZETIMIBE
     Indication: PRODUCT USED FOR UNKNOWN INDICATION
     Dosage: 10 MILLIGRAM, ONCE A DAY
     Route: 048
  47. EZETROL [Interacting]
     Active Substance: EZETIMIBE
     Route: 048
  48. EZETROL [Interacting]
     Active Substance: EZETIMIBE
     Route: 048
  49. DUROGESIC [Interacting]
     Active Substance: FENTANYL
     Indication: PRODUCT USED FOR UNKNOWN INDICATION
     Dosage: 50 MICROGRAM
     Route: 048
  50. DUROGESIC [Interacting]
     Active Substance: FENTANYL
     Dosage: 50 UG, UNK
     Route: 047
  51. URSOFALK [Interacting]
     Active Substance: URSODIOL
     Indication: PRODUCT USED FOR UNKNOWN INDICATION
     Dosage: 500 MILLIGRAM, TWO TIMES A DAY
     Route: 048
  52. URSOFALK [Interacting]
     Active Substance: URSODIOL
     Dosage: 500 MG,
     Route: 048
  53. URSOFALK [Interacting]
     Active Substance: URSODIOL
     Dosage: 500 MG,QD
     Route: 048
  54. SPIRIVA [Interacting]
     Active Substance: TIOTROPIUM BROMIDE MONOHYDRATE
     Dosage: RESPIRATORY (INHALATION)
  55. SPIRIVA [Interacting]
     Active Substance: TIOTROPIUM BROMIDE MONOHYDRATE
     Dosage: 18 ?G RESPIRATORY (INHALATION), 1-0-1-0
     Route: 055
  56. SPIRIVA [Interacting]
     Active Substance: TIOTROPIUM BROMIDE MONOHYDRATE
     Dosage: 18 UG, BID (1-0-1-0)
     Route: 055
  57. VIANI [Interacting]
     Active Substance: FLUTICASONE PROPIONATE\SALMETEROL XINAFOATE
     Dosage: RESPIRATORY (INHALATION)50|500 ?G, 1-0-1-0 ()
     Route: 055
  58. FUROSEMID                          /00032601/ [Suspect]
     Active Substance: FUROSEMIDE
     Indication: PRODUCT USED FOR UNKNOWN INDICATION
     Dosage: 40 MILLIGRAM,4-0-0-0
     Route: 048
  59. MAGNESIUM [Suspect]
     Active Substance: MAGNESIUM
     Dosage: (1)
     Route: 048
  60. LEVOPAR [Interacting]
     Active Substance: BENSERAZIDE\LEVODOPA
     Indication: PRODUCT USED FOR UNKNOWN INDICATION
     Dosage: 100 MILLIGRAM,1-0-2.5-0
     Route: 048
  61. LEVOPAR [Interacting]
     Active Substance: BENSERAZIDE\LEVODOPA
     Dosage: 100 MG 1-0-2.5-0
     Route: 048
  62. LEVOPAR [Interacting]
     Active Substance: BENSERAZIDE\LEVODOPA
     Dosage: 100 MG 1-0-2.5-0
     Route: 048
  63. RAPAMUNE [Interacting]
     Active Substance: SIROLIMUS
     Dosage: ()
     Route: 048
  64. RAPAMUNE [Interacting]
     Active Substance: SIROLIMUS
     Dosage: 1 MG
     Route: 048
  65. RAPAMUNE [Interacting]
     Active Substance: SIROLIMUS
     Dosage: 1 MG, 1-0-0-0 ()
     Route: 048
  66. VIGANTOLETTEN [Interacting]
     Active Substance: CHOLECALCIFEROL
     Indication: PRODUCT USED FOR UNKNOWN INDICATION
     Dosage: 100 IE, 1-0-0-0
     Route: 048
  67. VIGANTOLETTEN [Interacting]
     Active Substance: CHOLECALCIFEROL
     Dosage: 100 IU,QD
     Route: 048
  68. LACTULOSE. [Interacting]
     Active Substance: LACTULOSE
     Dosage: 1 MEASURING CUP,
     Route: 048
  69. LACTULOSE. [Interacting]
     Active Substance: LACTULOSE
     Dosage: 1 MEASURING CUP, 0-0-1-0 ()
     Route: 048
  70. SPIRIVA [Interacting]
     Active Substance: TIOTROPIUM BROMIDE MONOHYDRATE
     Indication: PRODUCT USED FOR UNKNOWN INDICATION
     Dosage: 18 MICROGRAM, TWO TIMES A DAY
     Route: 055
  71. SPIRIVA [Interacting]
     Active Substance: TIOTROPIUM BROMIDE MONOHYDRATE
     Dosage: 18 UG,BID
     Route: 055
  72. SPIRIVA [Interacting]
     Active Substance: TIOTROPIUM BROMIDE MONOHYDRATE
     Dosage: 18 UG, BID (1-0-1-0)
     Route: 055
  73. VIANI [Interacting]
     Active Substance: FLUTICASONE PROPIONATE\SALMETEROL XINAFOATE
     Dosage: 50|500 ?G,( 1-0-1-0) ()
     Route: 055
  74. VIANI [Interacting]
     Active Substance: FLUTICASONE PROPIONATE\SALMETEROL XINAFOATE
     Dosage: 50|500 ?G,( 1-0-1-0) ()
     Route: 055
  75. IMUREK                             /00001501/ [Suspect]
     Active Substance: AZATHIOPRINE
     Indication: PRODUCT USED FOR UNKNOWN INDICATION
     Dosage: 50 MILLIGRAM
     Route: 048
  76. ESIDRIX [Interacting]
     Active Substance: HYDROCHLOROTHIAZIDE
     Route: 048
  77. ESIDRIX [Interacting]
     Active Substance: HYDROCHLOROTHIAZIDE
     Route: 048
  78. MUCOSOLVAN [Interacting]
     Active Substance: AMBROXOL HYDROCHLORIDE
     Dosage: ()
     Route: 048
  79. MUCOSOLVAN [Interacting]
     Active Substance: AMBROXOL HYDROCHLORIDE
     Dosage: REQUIREMENT, BEDARFAS NECESSARY ()
     Route: 048
  80. MUCOSOLVAN [Interacting]
     Active Substance: AMBROXOL HYDROCHLORIDE
     Dosage: UNK UNK,UNK () ; AS NECESSARY
     Route: 048
  81. MUCOSOLVAN [Interacting]
     Active Substance: AMBROXOL HYDROCHLORIDE
     Dosage: (BEDARF) ()
     Route: 048
  82. MAGNESIUM [Suspect]
     Active Substance: MAGNESIUM
     Indication: PRODUCT USED FOR UNKNOWN INDICATION
     Dosage: 2-0-0-0
     Route: 048
  83. MAGNESIUM [Suspect]
     Active Substance: MAGNESIUM
     Dosage: (2)
     Route: 048
  84. LEVOPAR [Interacting]
     Active Substance: BENSERAZIDE\LEVODOPA
     Dosage: 100 MG, UNK (1-0-2.5-0)
     Route: 048
  85. LEVOPAR [Interacting]
     Active Substance: BENSERAZIDE\LEVODOPA
     Dosage: 100 MG, UNK (1-0-2.5-0)
     Route: 048
  86. RAPAMUNE [Interacting]
     Active Substance: SIROLIMUS
     Dosage: 1 MG, 1-0-0-0 ()
     Route: 048
  87. RAPAMUNE [Interacting]
     Active Substance: SIROLIMUS
     Dosage: 1 MG, QD (1-0-0-0)
     Route: 048
  88. LACTULOSE. [Interacting]
     Active Substance: LACTULOSE
     Indication: PRODUCT USED FOR UNKNOWN INDICATION
     Dosage: 1 MESSBECHER, 0-0-1-0 ()
     Route: 048
  89. EZETROL [Interacting]
     Active Substance: EZETIMIBE
     Dosage: 10 MG,
     Route: 048
  90. EZETROL [Interacting]
     Active Substance: EZETIMIBE
     Route: 048
  91. SPIRONOLACTON [Interacting]
     Active Substance: SPIRONOLACTONE
     Indication: PRODUCT USED FOR UNKNOWN INDICATION
     Dosage: 100 MILLIGRAM, TWO TIMES A DAY
     Route: 048
  92. SPIRONOLACTON [Interacting]
     Active Substance: SPIRONOLACTONE
     Dosage: 100 MG,
     Route: 048
  93. URSOFALK [Interacting]
     Active Substance: URSODIOL
     Route: 048
  94. SPIRIVA [Interacting]
     Active Substance: TIOTROPIUM BROMIDE MONOHYDRATE
     Route: 055
  95. VIANI [Interacting]
     Active Substance: FLUTICASONE PROPIONATE\SALMETEROL XINAFOATE
     Indication: PRODUCT USED FOR UNKNOWN INDICATION
     Dosage: 50|500 ?G, 1-0-1-0
     Route: 055
  96. VIANI [Interacting]
     Active Substance: FLUTICASONE PROPIONATE\SALMETEROL XINAFOATE
     Dosage: 50|500 ?G,
     Route: 055
  97. ESIDRIX [Interacting]
     Active Substance: HYDROCHLOROTHIAZIDE
     Dosage: 25 MG,
     Route: 048
  98. MUCOSOLVAN [Interacting]
     Active Substance: AMBROXOL HYDROCHLORIDE
     Dosage: REQUIREMENT () ; AS NECESSARY
     Route: 048
  99. MAGNESIUM [Suspect]
     Active Substance: MAGNESIUM
     Dosage: (2)
     Route: 048
  100. SIMVASTATIN. [Suspect]
     Active Substance: SIMVASTATIN
     Indication: PRODUCT USED FOR UNKNOWN INDICATION
     Dosage: 40 MILLIGRAM, ONCE A DAY
     Route: 048
  101. RAPAMUNE [Interacting]
     Active Substance: SIROLIMUS
     Route: 048
  102. RAPAMUNE [Interacting]
     Active Substance: SIROLIMUS
     Dosage: 1 MG, QD (1-0-0-0)
     Route: 048
  103. VIGANTOLETTEN [Interacting]
     Active Substance: CHOLECALCIFEROL
     Dosage: 100 IE, 1-0-0-0
     Route: 048
  104. VIGANTOLETTEN [Interacting]
     Active Substance: CHOLECALCIFEROL
     Route: 048
  105. VIGANTOLETTEN [Interacting]
     Active Substance: CHOLECALCIFEROL
     Dosage: 100 IE, 1-0-0-0
     Route: 048
  106. LACTULOSE. [Interacting]
     Active Substance: LACTULOSE
     Dosage: 1 MESSBECHER, 0-0-1-0 ()
     Route: 048
  107. LACTULOSE. [Interacting]
     Active Substance: LACTULOSE
     Dosage: 1 MEASURING CUP,
     Route: 048
  108. DUROGESIC [Interacting]
     Active Substance: FENTANYL
     Route: 048
  109. DUROGESIC [Interacting]
     Active Substance: FENTANYL
     Route: 048
  110. SPIRONOLACTON [Interacting]
     Active Substance: SPIRONOLACTONE
     Dosage: 100 MG, BID (2-0-0-0)
     Route: 048
  111. URSOFALK [Interacting]
     Active Substance: URSODIOL
     Dosage: 500 MG, BID (1-0-1-0)
     Route: 048
  112. SPIRIVA [Interacting]
     Active Substance: TIOTROPIUM BROMIDE MONOHYDRATE
     Route: 055
  113. ESIDRIX [Interacting]
     Active Substance: HYDROCHLOROTHIAZIDE
     Dosage: 25 MG, QD (1-0-0-0)
     Route: 048
  114. KALINOR                            /00031402/ [Suspect]
     Active Substance: POTASSIUM CHLORIDE
     Indication: PRODUCT USED FOR UNKNOWN INDICATION
     Dosage: 100 MILLIGRAM, ONCE A DAY
     Route: 048
  115. LEVOPAR [Interacting]
     Active Substance: BENSERAZIDE\LEVODOPA
     Dosage: 100 MG, 1-0-2.5-0 ()
     Route: 048
  116. RAPAMUNE [Interacting]
     Active Substance: SIROLIMUS
     Dosage: ()
     Route: 048
  117. RAPAMUNE [Interacting]
     Active Substance: SIROLIMUS
     Dosage: 1 MG
     Route: 048
  118. RAPAMUNE [Interacting]
     Active Substance: SIROLIMUS
     Dosage: UNK UNK,UNK ()
     Route: 048
  119. VIGANTOLETTEN [Interacting]
     Active Substance: CHOLECALCIFEROL
     Dosage: 100 IE, 1-0-0-0
     Route: 048
  120. VIGANTOLETTEN [Interacting]
     Active Substance: CHOLECALCIFEROL
     Dosage: 100 IU,QD
     Route: 048
  121. LACTULOSE. [Interacting]
     Active Substance: LACTULOSE
     Dosage: (1)
     Route: 048
  122. LACTULOSE. [Interacting]
     Active Substance: LACTULOSE
     Dosage: (1 MESSBECHER, 0-0-1-0) ()
     Route: 048
  123. LACTULOSE. [Interacting]
     Active Substance: LACTULOSE
     Dosage: (1 MESSBECHER, 0-0-1-0) ()
     Route: 048
  124. EZETROL [Interacting]
     Active Substance: EZETIMIBE
     Dosage: 10 MG,1-0-0-0
     Route: 048
  125. EZETROL [Interacting]
     Active Substance: EZETIMIBE
     Dosage: 10 MG,QD
     Route: 048
  126. SPIRIVA [Interacting]
     Active Substance: TIOTROPIUM BROMIDE MONOHYDRATE
     Dosage: 18 ?G
     Route: 055
  127. SPIRIVA [Interacting]
     Active Substance: TIOTROPIUM BROMIDE MONOHYDRATE
     Dosage: 18 ?G RESPIRATORY (INHALATION), 1-0-1-0
     Route: 055
  128. VIANI [Interacting]
     Active Substance: FLUTICASONE PROPIONATE\SALMETEROL XINAFOATE
     Dosage: 50|500 ?G,( 1-0-1-0) ()
     Route: 055
  129. ESIDRIX [Interacting]
     Active Substance: HYDROCHLOROTHIAZIDE
     Route: 048
  130. NOVALGIN                           /00169801/ [Suspect]
     Active Substance: ACETAMINOPHEN\CAFFEINE\PROPYPHENAZONE
     Indication: PRODUCT USED FOR UNKNOWN INDICATION
     Dosage: UNIT DOSE: 30 DROPS
     Route: 048
  131. MUCOSOLVAN [Interacting]
     Active Substance: AMBROXOL HYDROCHLORIDE
     Dosage: (BEDARF) ()
     Route: 048
  132. MAGNESIUM [Suspect]
     Active Substance: MAGNESIUM
     Dosage: 2-0-0-0 ()
     Route: 048
  133. LEVOPAR [Interacting]
     Active Substance: BENSERAZIDE\LEVODOPA
     Dosage: 100 MG, UNK (1-0-2.5-0)
     Route: 048
  134. RAPAMUNE [Interacting]
     Active Substance: SIROLIMUS
     Route: 048
  135. LACTULOSE. [Interacting]
     Active Substance: LACTULOSE
     Dosage: 1 DF, QD
     Route: 048
  136. EZETROL [Interacting]
     Active Substance: EZETIMIBE
     Dosage: 10 MG,1-0-0-0
     Route: 048
  137. DUROGESIC [Interacting]
     Active Substance: FENTANYL
     Dosage: 50 UG,UNK
     Route: 048
  138. PANTOZOL [Suspect]
     Active Substance: PANTOPRAZOLE SODIUM
     Indication: PRODUCT USED FOR UNKNOWN INDICATION
     Dosage: 40 MILLIGRAM, ONCE A DAY
     Route: 048
  139. SPIRONOLACTON [Interacting]
     Active Substance: SPIRONOLACTONE
     Dosage: 100 MG, 2-0-0-0
     Route: 048
  140. SPIRONOLACTON [Interacting]
     Active Substance: SPIRONOLACTONE
     Route: 048
  141. SPIRIVA [Interacting]
     Active Substance: TIOTROPIUM BROMIDE MONOHYDRATE
     Dosage: 18 ?G RESPIRATORY (INHALATION)
     Route: 055
  142. VIANI [Interacting]
     Active Substance: FLUTICASONE PROPIONATE\SALMETEROL XINAFOATE
     Dosage: 50|500 ?G, (2)
     Route: 055
  143. VIANI [Interacting]
     Active Substance: FLUTICASONE PROPIONATE\SALMETEROL XINAFOATE
     Dosage: RESPIRATORY (INHALATION)50|500 ?G, 1-0-1-0 ()
     Route: 055
  144. VIANI [Interacting]
     Active Substance: FLUTICASONE PROPIONATE\SALMETEROL XINAFOATE
     Dosage: (1)
     Route: 055
  145. ESIDRIX [Interacting]
     Active Substance: HYDROCHLOROTHIAZIDE
     Indication: PRODUCT USED FOR UNKNOWN INDICATION
     Dosage: 25 MILLIGRAM, ONCE A DAY
     Route: 048
  146. ESIDRIX [Interacting]
     Active Substance: HYDROCHLOROTHIAZIDE
     Dosage: 25 MG,
     Route: 048
  147. MUCOSOLVAN [Interacting]
     Active Substance: AMBROXOL HYDROCHLORIDE
     Dosage: REQUIREMENT () ; AS NECESSARY
     Route: 048
  148. MAGNESIUM [Suspect]
     Active Substance: MAGNESIUM
     Dosage: 2-0-0-0 ()
     Route: 048

REACTIONS (2)
  - Drug prescribing error [Unknown]
  - General physical health deterioration [Unknown]

NARRATIVE: CASE EVENT DATE: 20150916
